FAERS Safety Report 11363389 (Version 1)
Quarter: 2015Q3

REPORT INFORMATION
  Report Type: Spontaneous
  Country: US (occurrence: US)
  Receive Date: 20150811
  Receipt Date: 20150811
  Transmission Date: 20151125
  Serious: No
  Sender: FDA-Public Use
  Company Number: US-TEVA-549143USA

PATIENT
  Sex: Female

DRUGS (1)
  1. TRIAMCINOLONE [Suspect]
     Active Substance: TRIAMCINOLONE
     Indication: HYPERSENSITIVITY
     Dosage: 4 DOSAGE FORMS DAILY; 55 MCG / 17 G
     Route: 045
     Dates: start: 201412

REACTIONS (7)
  - Rhinitis [Unknown]
  - Chronic sinusitis [Unknown]
  - Drug ineffective [Unknown]
  - Product packaging quantity issue [Unknown]
  - Rhinorrhoea [Unknown]
  - Incorrect dosage administered [Unknown]
  - Eye pruritus [Unknown]
